FAERS Safety Report 8537010-9 (Version None)
Quarter: 2012Q3

REPORT INFORMATION
  Report Type: 
  Country: None (occurrence: None)
  Receive Date: 20120713
  Receipt Date: 20120704
  Transmission Date: 20120928
  Serious: Yes (Life-Threatening, Hospitalization)
  Sender: FDA-Public Use
  Company Number: 2012CP000076

PATIENT
  Age: 82 Year
  Sex: Male

DRUGS (10)
  1. ACETAMINOPHEN [Suspect]
     Dosage: 1 DOSAGE FORM;IV
     Route: 042
     Dates: start: 20120605, end: 20120618
  2. LOVENOX [Concomitant]
  3. PIPERACILLIN AND TAZOBACTAM [Suspect]
     Dates: start: 20120605, end: 20120618
  4. MOLSIDOMINE [Concomitant]
  5. ATORVASTATIN [Concomitant]
  6. ASPIRIN [Concomitant]
  7. IRBESARTAN [Concomitant]
  8. AUGMENTIN [Suspect]
     Dates: start: 20120614, end: 20120618
  9. ESOMEPRAZOLE [Concomitant]
  10. NITROGLYCERIN [Concomitant]

REACTIONS (2)
  - HYPERTHERMIA [None]
  - NEUTROPENIA [None]
